FAERS Safety Report 8263389-1 (Version None)
Quarter: 2012Q2

REPORT INFORMATION
  Report Type: 
  Country: None (occurrence: None)
  Receive Date: 20120405
  Receipt Date: 20120328
  Transmission Date: 20120825
  Serious: Yes (Hospitalization, Other)
  Sender: FDA-Public Use
  Company Number: GB-MILLENNIUM PHARMACEUTICALS, INC.-2012-00962

PATIENT

DRUGS (7)
  1. ENOXAPARIN [Concomitant]
     Dosage: UNK
     Dates: start: 20120130
  2. VELCADE [Suspect]
     Indication: MULTIPLE MYELOMA
     Dosage: 2 MG, UNK
     Route: 065
     Dates: start: 20120201
  3. ALLOPURINOL [Concomitant]
     Dosage: UNK
     Dates: start: 20120120
  4. OMEPRAZOLE [Concomitant]
     Dosage: UNK
     Dates: start: 20120201
  5. DOMPERIDONE [Concomitant]
     Dosage: UNK
     Dates: start: 20120201
  6. CACIT                              /00108001/ [Concomitant]
     Dosage: UNK
     Dates: start: 20120120
  7. DOCUSATE [Concomitant]
     Dosage: UNK
     Dates: start: 20120120

REACTIONS (1)
  - SUPRAVENTRICULAR TACHYCARDIA [None]
